FAERS Safety Report 13277118 (Version 2)
Quarter: 2017Q2

REPORT INFORMATION
  Report Type: Spontaneous
  Country: JP (occurrence: JP)
  Receive Date: 20170228
  Receipt Date: 20170403
  Transmission Date: 20170830
  Serious: Yes (Other)
  Sender: FDA-Public Use
  Company Number: JP-PFIZER INC-2017084299

PATIENT
  Age: 9 Decade
  Sex: Female

DRUGS (11)
  1. RIZE /00624801/ [Concomitant]
     Active Substance: CLOTIAZEPAM
     Dosage: 5 MG, ONCE DAILY, AT THE TIME OF INSOMNIA
     Route: 048
  2. AVAPRO [Concomitant]
     Active Substance: IRBESARTAN
     Dosage: 100 MG, ONCE DAILY, AFTER BREAKFAST
     Route: 048
  3. SENNOSIDE /00571901/ [Concomitant]
     Active Substance: SENNOSIDES A AND B
     Indication: CONSTIPATION
     Dosage: 1 DF, DAILY
     Route: 048
  4. MEILAX [Concomitant]
     Active Substance: ETHYL LOFLAZEPATE
     Dosage: 1 MG, 1X/DAY (1 TABLET/MIN BEFORE SLEEP)
     Route: 048
  5. HALCION [Concomitant]
     Active Substance: TRIAZOLAM
     Dosage: 160.25 MG, 1X/DAY  (1 TABLET/MIN BEFORE SLEEP)
  6. LIPITOR [Suspect]
     Active Substance: ATORVASTATIN CALCIUM
     Dosage: 5 MG, ONCE DAILY, AFTER BREAKFAST
     Route: 048
  7. AMLODIPINE [Concomitant]
     Active Substance: AMLODIPINE BESYLATE
     Dosage: 5 MG, ONCE DAILY, AFTER BREAKFAST
     Route: 048
  8. TOLEDOMIN [Concomitant]
     Active Substance: MILNACIPRAN HYDROCHLORIDE
     Dosage: 50 MG, TWICE DAILY, AFTER BREAKFAST AND DINNER
     Route: 048
  9. GLUCOBAY [Concomitant]
     Active Substance: ACARBOSE
     Dosage: 100 MG, THRICE DAILY, BEFORE MEAL
     Route: 048
  10. RIZE /00624801/ [Concomitant]
     Active Substance: CLOTIAZEPAM
     Indication: INSOMNIA
     Dosage: 5 MG, 1X/DAY (1 TABLET/MIN BEFORE SLEEP)
     Route: 048
  11. AMARYL [Concomitant]
     Active Substance: GLIMEPIRIDE
     Dosage: 1 MG, TWICE DAILY, AFTER BREAKFAST AND DINNER
     Route: 048

REACTIONS (2)
  - Diabetes mellitus [Unknown]
  - Dementia [Unknown]
